FAERS Safety Report 5817784-8 (Version None)
Quarter: 2008Q3

REPORT INFORMATION
  Report Type: 
  Country: None (occurrence: None)
  Receive Date: 20080722
  Receipt Date: 20080711
  Transmission Date: 20090109
  Serious: No
  Sender: FDA-Public Use
  Company Number: US-ELI_LILLY_AND_COMPANY-US200807002820

PATIENT
  Age: 29 Year
  Sex: Female

DRUGS (4)
  1. CYMBALTA [Suspect]
     Dosage: 30 MG, UNK
     Dates: start: 20080307, end: 20080404
  2. CYMBALTA [Suspect]
     Dosage: 60 MG, UNK
     Dates: start: 20080404, end: 20080521
  3. CYMBALTA [Suspect]
     Dosage: 30 MG, UNK
     Dates: start: 20080521, end: 20080609
  4. BUSPAR [Concomitant]
     Dosage: 10 MG, 2/D
     Dates: start: 20080424

REACTIONS (2)
  - ALANINE AMINOTRANSFERASE INCREASED [None]
  - ASPARTATE AMINOTRANSFERASE INCREASED [None]
